FAERS Safety Report 16792711 (Version 2)
Quarter: 2019Q3

REPORT INFORMATION
  Report Type: Spontaneous
  Country: MM (occurrence: MM)
  Receive Date: 20190910
  Receipt Date: 20190910
  Transmission Date: 20191005
  Serious: Yes (Hospitalization, Disabling, Other)
  Sender: FDA-Public Use
  Company Number: PHHY2019MM208440

PATIENT
  Age: 32 Year
  Sex: Male
  Weight: 43 kg

DRUGS (12)
  1. BEDAQUILINE [Suspect]
     Active Substance: BEDAQUILINE
     Dosage: 200 MG, TIW
     Route: 065
     Dates: start: 201903
  2. LINEZOLID. [Suspect]
     Active Substance: LINEZOLID
     Indication: TUBERCULOSIS
     Dosage: 600 MG, QD
     Route: 065
     Dates: start: 20190305, end: 20190816
  3. LEVOFLOXACIN. [Suspect]
     Active Substance: LEVOFLOXACIN
     Indication: TUBERCULOSIS
     Dosage: 1000 MG, QD
     Route: 065
     Dates: start: 20190305
  4. METOCLOPRAMIDE. [Concomitant]
     Active Substance: METOCLOPRAMIDE
     Indication: HYPERTENSION
     Dosage: FOR 5 DAYS
     Route: 065
     Dates: start: 20190521
  5. CLOFAZIMINE [Suspect]
     Active Substance: CLOFAZIMINE
     Indication: TUBERCULOSIS
     Dosage: 100 MG, QD
     Route: 065
     Dates: start: 20190305
  6. AMLODIPINE [Concomitant]
     Active Substance: AMLODIPINE BESYLATE
     Indication: HYPERTENSION
     Dosage: UNK
     Route: 065
     Dates: start: 20190723
  7. DELAMANID [Suspect]
     Active Substance: DELAMANID
     Dosage: 100 MG, QD
     Route: 065
     Dates: start: 201905
  8. PYRIDOXINE [Concomitant]
     Active Substance: PYRIDOXINE
     Indication: PRODUCT USED FOR UNKNOWN INDICATION
     Dosage: UNK
     Route: 065
     Dates: start: 20190304
  9. DELAMANID [Suspect]
     Active Substance: DELAMANID
     Indication: TUBERCULOSIS
     Dosage: 200 MG, QD (FOR 2 MONTHS)
     Route: 065
     Dates: start: 20190305, end: 201905
  10. BEDAQUILINE [Suspect]
     Active Substance: BEDAQUILINE
     Indication: TUBERCULOSIS
     Dosage: 400 MG, QD (FOR TWO WEEKS)
     Route: 065
     Dates: start: 20190305, end: 201903
  11. ENALAPRIL [Concomitant]
     Active Substance: ENALAPRIL
     Indication: HYPERTENSION
     Dosage: FOR 5 DAYS
     Route: 065
     Dates: start: 20190521, end: 20190723
  12. ALZOLAM [Concomitant]
     Indication: ANXIETY
     Dosage: UNK
     Route: 065

REACTIONS (10)
  - Blood magnesium decreased [Unknown]
  - Neuropathy peripheral [Unknown]
  - Blood creatinine increased [Recovered/Resolved]
  - Weight decreased [Unknown]
  - Anaemia [Recovered/Resolved]
  - Decreased appetite [Unknown]
  - Vomiting [Recovering/Resolving]
  - Underdose [Unknown]
  - Incorrect product administration duration [Unknown]
  - Hypokalaemia [Recovered/Resolved]

NARRATIVE: CASE EVENT DATE: 20190408
